APPROVED DRUG PRODUCT: DOXAZOSIN MESYLATE
Active Ingredient: DOXAZOSIN MESYLATE
Strength: EQ 4MG BASE
Dosage Form/Route: TABLET;ORAL
Application: A075509 | Product #003 | TE Code: AB
Applicant: AUROBINDO PHARMA USA INC
Approved: Oct 19, 2000 | RLD: No | RS: No | Type: RX